FAERS Safety Report 25468725 (Version 1)
Quarter: 2025Q2

REPORT INFORMATION
  Report Type: Spontaneous
  Country: US (occurrence: US)
  Receive Date: 20250623
  Receipt Date: 20250623
  Transmission Date: 20250716
  Serious: No
  Sender: SANOFI AVENTIS
  Company Number: US-SA-2025SA176038

PATIENT
  Age: 58 Year
  Sex: Female

DRUGS (1)
  1. DUPIXENT [Suspect]
     Active Substance: DUPILUMAB
     Indication: Asthma
     Dosage: 300 MG, QOW
     Route: 058

REACTIONS (7)
  - Allergy to plants [Unknown]
  - Staphylococcal skin infection [Unknown]
  - Nerve injury [Unknown]
  - Condition aggravated [Unknown]
  - Bone pain [Unknown]
  - Pruritus [Unknown]
  - Rash [Unknown]
